FAERS Safety Report 14763525 (Version 1)
Quarter: 2018Q2

REPORT INFORMATION
  Report Type: Spontaneous
  Country: US (occurrence: US)
  Receive Date: 20180409
  Receipt Date: 20180409
  Transmission Date: 20180711
  Serious: Yes (Other)
  Sender: FDA-Public Use
  Company Number: None

PATIENT
  Age: 51 Year
  Sex: Male
  Weight: 95.2 kg

DRUGS (1)
  1. YESCARTA [Suspect]
     Active Substance: AXICABTAGENE CILOLEUCEL
     Route: 042
     Dates: start: 20180321

REACTIONS (6)
  - Neurotoxicity [None]
  - Pulmonary embolism [None]
  - Pneumonia [None]
  - Pyrexia [None]
  - Transaminases increased [None]
  - Hypoxia [None]

NARRATIVE: CASE EVENT DATE: 20180322
